FAERS Safety Report 11116808 (Version 1)
Quarter: 2015Q2

REPORT INFORMATION
  Report Type: Not Available
  Country: CH (occurrence: CH)
  Receive Date: 20150515
  Receipt Date: 20150515
  Transmission Date: 20150821
  Serious: Yes (Hospitalization)
  Sender: FDA-Public Use
  Company Number: CH-MUNDIPHARMA DS AND PHARMACOVIGILANCE-DEU-2015-0016730

PATIENT
  Age: 67 Year
  Sex: Female

DRUGS (18)
  1. FLUANXOL                           /00109702/ [Concomitant]
     Active Substance: FLUPENTIXOL
  2. ATORVASTATIN [Concomitant]
     Active Substance: ATORVASTATIN
  3. REMERON [Concomitant]
     Active Substance: MIRTAZAPINE
  4. BELOC                              /01739801/ [Concomitant]
  5. FOLVITE                            /00024201/ [Concomitant]
  6. CONDROSULF [Concomitant]
     Active Substance: CHONDROITIN SULFATE (CHICKEN)
  7. SAROTEN [Concomitant]
     Active Substance: AMITRIPTYLINE
  8. PANTOZOL [Concomitant]
     Active Substance: PANTOPRAZOLE SODIUM
  9. IMODIUM [Concomitant]
     Active Substance: LOPERAMIDE HYDROCHLORIDE
  10. ZESTORETIC [Concomitant]
     Active Substance: HYDROCHLOROTHIAZIDE\LISINOPRIL
  11. VITAMIN D3 [Concomitant]
     Active Substance: CHOLECALCIFEROL
  12. CIMICIFUGA RACEMOSA ROOT [Concomitant]
  13. TARGIN TABLETTEN RETARD [Suspect]
     Active Substance: NALOXONE HYDROCHLORIDE\OXYCODONE HYDROCHLORIDE
     Indication: PRODUCT USED FOR UNKNOWN INDICATION
     Dosage: 10/5 MG, BID
     Route: 048
     Dates: end: 201503
  14. VITAMIN B12                        /00260201/ [Concomitant]
  15. DEANXIT [Concomitant]
     Active Substance: FLUPENTIXOL DIHYDROCHLORIDE\MELITRACEN HYDROCHLORIDE
  16. RISPERDAL [Concomitant]
     Active Substance: RISPERIDONE
  17. NOVALGIN [Concomitant]
     Active Substance: METAMIZOLE SODIUM
  18. ZOLDORM [Concomitant]
     Active Substance: ZOLPIDEM TARTRATE

REACTIONS (3)
  - Miosis [Recovered/Resolved]
  - Toxicity to various agents [Recovered/Resolved]
  - Fall [Recovered/Resolved]

NARRATIVE: CASE EVENT DATE: 201503
